FAERS Safety Report 16705967 (Version 3)
Quarter: 2019Q4

REPORT INFORMATION
  Report Type: Spontaneous
  Country: ES (occurrence: ES)
  Receive Date: 20190815
  Receipt Date: 20191001
  Transmission Date: 20200122
  Serious: Yes (Other)
  Sender: FDA-Public Use
  Company Number: ES-CHIESI USA, INC.-ES-2019CHI000311

PATIENT

DRUGS (2)
  1. REMIFENTANIL [Suspect]
     Active Substance: REMIFENTANIL
     Indication: ANALGESIC THERAPY
     Dosage: 0.2 ?G/KG/MIN
     Route: 065
  2. CLEVIDIPINE [Suspect]
     Active Substance: CLEVIDIPINE
     Indication: POSTOPERATIVE HYPERTENSION
     Dosage: UNK
     Route: 042

REACTIONS (5)
  - Premature recovery from anaesthesia [Unknown]
  - Hypovolaemic shock [Unknown]
  - Hypertensive crisis [Unknown]
  - Arterial haemorrhage [Recovered/Resolved]
  - Pericardial effusion [Recovered/Resolved]
